FAERS Safety Report 24027228 (Version 1)
Quarter: 2024Q2

REPORT INFORMATION
  Report Type: Spontaneous
  Country: US (occurrence: US)
  Receive Date: 20240628
  Receipt Date: 20240628
  Transmission Date: 20240715
  Serious: No
  Sender: FDA-Public Use
  Company Number: US-BRISTOL-MYERS SQUIBB COMPANY-2024-102074

PATIENT
  Age: 60 Year
  Sex: Male
  Weight: 110 kg

DRUGS (5)
  1. OPDIVO [Suspect]
     Active Substance: NIVOLUMAB
     Indication: Renal cancer
     Dates: start: 20240513
  2. OPDIVO [Suspect]
     Active Substance: NIVOLUMAB
     Dates: start: 20240513
  3. YERVOY [Suspect]
     Active Substance: IPILIMUMAB
     Indication: Renal cancer
  4. YERVOY [Suspect]
     Active Substance: IPILIMUMAB
  5. NORCO [Concomitant]
     Active Substance: ACETAMINOPHEN\HYDROCODONE BITARTRATE
     Indication: Product used for unknown indication

REACTIONS (6)
  - Dyspnoea [Unknown]
  - Back pain [Unknown]
  - Flushing [Unknown]
  - Chest discomfort [Unknown]
  - Chills [Unknown]
  - Off label use [Unknown]

NARRATIVE: CASE EVENT DATE: 20240603
